FAERS Safety Report 14561536 (Version 1)
Quarter: 2018Q1

REPORT INFORMATION
  Report Type: Spontaneous
  Country: US (occurrence: US)
  Receive Date: 20180222
  Receipt Date: 20180222
  Transmission Date: 20180509
  Serious: Yes (Other)
  Sender: FDA-Public Use
  Company Number: US-GLENMARK PHARMACEUTICALS-2018GMK032422

PATIENT
  Age: 18 Year
  Sex: Female

DRUGS (2)
  1. DESMOPRESSIN ACETATE. [Suspect]
     Active Substance: DESMOPRESSIN ACETATE
     Indication: MENORRHAGIA
     Dosage: UNK, NASAL SPRAY ON 1ST AND 2ND DAY OF MENSES
     Route: 065
  2. DESMOPRESSIN ACETATE. [Suspect]
     Active Substance: DESMOPRESSIN ACETATE
     Indication: VON WILLEBRAND^S DISEASE

REACTIONS (3)
  - Immune thrombocytopenic purpura [Unknown]
  - Condition aggravated [Unknown]
  - Drug effective for unapproved indication [Unknown]
